FAERS Safety Report 7723346-8 (Version None)
Quarter: 2011Q3

REPORT INFORMATION
  Report Type: 
  Country: None (occurrence: None)
  Receive Date: 20110826
  Receipt Date: 20110812
  Transmission Date: 20111222
  Serious: Yes (Hospitalization)
  Sender: FDA-Public Use
  Company Number: 1000021005

PATIENT
  Age: 47 Year
  Sex: Male

DRUGS (10)
  1. CARBAMAZEPINE [Suspect]
     Dosage: 800 MG (800 MG,1 IN 1 D)
  2. CARBAMAZEPINE [Suspect]
     Dates: start: 20100801
  3. CITALOPRAM HYDROBROMIDE [Suspect]
     Dosage: 40 MG (40 MG,1 IN 1 D) ; 20 MG (20 MG,1 IN 1 D)
     Dates: start: 20100601
  4. TIAPRID (TIAPRIDE HYDROCHLORIDE) (TIAPRIDE HYDROCHLORIDE) [Concomitant]
  5. GABAPENTIN (GABAPENTIN) (GABAPENTIN) [Concomitant]
  6. CARBAMAZEPINE [Suspect]
     Dosage: 1000 MG (1000 MG,1 IN 1 D)
  7. MIRTAZAPIN (MIRTAZAPINE) (MIRTAZAPINE) [Concomitant]
  8. ERGENYL CHRONO (VALPROIC ACID) (500 MILLIGRAM) (VALPROIC ACID) [Concomitant]
  9. KEPPRA [Suspect]
     Dosage: 1000 MG (1000 MG,1 IN 1 D) ; 2000 MG (2000 MG,1 IN 1 D)
     Dates: start: 20080901
  10. BOTULINUM TOXIN A (BOTULINUM TOXIN TYPE A) (BOTULINUM TOXIN TYPE A) [Concomitant]

REACTIONS (20)
  - AMNESTIC DISORDER [None]
  - BONE SCAN ABNORMAL [None]
  - GENERAL PHYSICAL HEALTH DETERIORATION [None]
  - HEPATIC CYST [None]
  - COGNITIVE DISORDER [None]
  - LIPOMA [None]
  - ATAXIA [None]
  - WEIGHT DECREASED [None]
  - ACTIVITIES OF DAILY LIVING IMPAIRED [None]
  - MALNUTRITION [None]
  - C-REACTIVE PROTEIN INCREASED [None]
  - LEUKOCYTOSIS [None]
  - GRAND MAL CONVULSION [None]
  - ARACHNOID CYST [None]
  - GRANULOMA [None]
  - MYOCLONIC EPILEPSY AND RAGGED-RED FIBRES [None]
  - DIARRHOEA [None]
  - NASAL CONGESTION [None]
  - ENCEPHALITIS [None]
  - DISORIENTATION [None]
